FAERS Safety Report 23420331 (Version 2)
Quarter: 2024Q1

REPORT INFORMATION
  Report Type: Spontaneous
  Country: JP (occurrence: JP)
  Receive Date: 20240119
  Receipt Date: 20240126
  Transmission Date: 20240410
  Serious: Yes (Hospitalization)
  Sender: FDA-Public Use
  Company Number: JP-CHUGAI-2024000290

PATIENT
  Age: 9 Year
  Sex: Female
  Weight: 10.5 kg

DRUGS (1)
  1. EVRYSDI [Suspect]
     Active Substance: RISDIPLAM
     Indication: Spinal muscular atrophy
     Dosage: 3.5 MILLILITER, QD
     Route: 065
     Dates: start: 20231006

REACTIONS (2)
  - Weight decreased [Unknown]
  - Adenovirus infection [Recovered/Resolved]
